FAERS Safety Report 7889767-8 (Version None)
Quarter: 2011Q4

REPORT INFORMATION
  Report Type: 
  Country: None (occurrence: None)
  Receive Date: 20111103
  Receipt Date: 20111026
  Transmission Date: 20120403
  Serious: No
  Sender: FDA-Public Use
  Company Number: US-B.I. PHARMACEUTICALS,INC./RIDGEFIELD-2011-BP-25045BP

PATIENT
  Sex: Female

DRUGS (5)
  1. POTASSIUM [Concomitant]
     Indication: SUPPLEMENTATION THERAPY
  2. PRADAXA [Suspect]
     Indication: ATRIAL FIBRILLATION
     Route: 048
     Dates: end: 20111024
  3. BUMEX [Concomitant]
     Indication: ATRIAL FIBRILLATION
  4. COREG [Concomitant]
     Indication: HYPERTENSION
  5. ASPIRIN [Concomitant]
     Indication: PROPHYLAXIS

REACTIONS (3)
  - DIZZINESS [None]
  - DYSPNOEA [None]
  - ASTHENIA [None]
